FAERS Safety Report 7291452-0 (Version None)
Quarter: 2011Q1

REPORT INFORMATION
  Report Type: 
  Country: None (occurrence: None)
  Receive Date: 20110201
  Receipt Date: 20110121
  Transmission Date: 20110831
  Serious: Yes (Other)
  Sender: FDA-Public Use
  Company Number: MPS1-1000419

PATIENT
  Age: 25 Year

DRUGS (2)
  1. ALDURAZYME [Suspect]
     Indication: MUCOPOLYSACCHARIDOSIS I
     Dosage: 20.3 MG, Q15D, INTRAVENOUS
     Route: 042
  2. LUMINAL (PHENOBARBITAL SODIUM) [Concomitant]

REACTIONS (2)
  - CONVULSION [None]
  - INFUSION RELATED REACTION [None]
